FAERS Safety Report 6516278-4 (Version None)
Quarter: 2009Q4

REPORT INFORMATION
  Report Type: 
  Country: None (occurrence: None)
  Receive Date: 20091223
  Receipt Date: 20091222
  Transmission Date: 20100525
  Serious: Yes (Hospitalization)
  Sender: FDA-Public Use
  Company Number: DE-ROCHE-674892

PATIENT
  Sex: Male
  Weight: 73 kg

DRUGS (4)
  1. BEVACIZUMAB [Suspect]
     Route: 042
     Dates: start: 20081209, end: 20090127
  2. IRINOTECAN HCL [Concomitant]
     Route: 042
     Dates: start: 20081209, end: 20090217
  3. LEUCOVORIN CALCIUM [Concomitant]
     Route: 042
     Dates: start: 20081209, end: 20090217
  4. FLUOROURACIL [Concomitant]
     Route: 042
     Dates: start: 20081209, end: 20090217

REACTIONS (2)
  - COLON CANCER RECURRENT [None]
  - COLONIC STENOSIS [None]
